FAERS Safety Report 22270412 (Version 1)
Quarter: 2023Q2

REPORT INFORMATION
  Report Type: Spontaneous
  Country: US (occurrence: None)
  Receive Date: 20230429
  Receipt Date: 20230429
  Transmission Date: 20230721
  Serious: Yes (Disabling)
  Sender: FDA-Public Use
  Company Number: None

PATIENT
  Age: 43 Year
  Sex: Female
  Weight: 85.5 kg

DRUGS (10)
  1. OXYCODONE AND ACETAMINOPHEN [Suspect]
     Active Substance: ACETAMINOPHEN\OXYCODONE HYDROCHLORIDE
     Indication: Pain
     Dosage: FREQUENCY : 3 TIMES A DAY;?
     Route: 048
     Dates: start: 20230106
  2. TIZANIDINE [Concomitant]
     Active Substance: TIZANIDINE
  3. TRAMADOL [Concomitant]
  4. HYDROCHLOROTHIAZIDE [Concomitant]
     Active Substance: HYDROCHLOROTHIAZIDE
  5. GABAPENTIN [Concomitant]
     Active Substance: GABAPENTIN
  6. LETROZOLE [Concomitant]
     Active Substance: LETROZOLE
  7. IBUPROFEN [Concomitant]
     Active Substance: IBUPROFEN
  8. SUMATRIPTAN [Concomitant]
  9. HYDROXYZINE [Concomitant]
  10. Pro Air Inhaler [Concomitant]

REACTIONS (5)
  - Nausea [None]
  - Vomiting [None]
  - Headache [None]
  - Drug ineffective [None]
  - Product substitution issue [None]
